FAERS Safety Report 4840943-8 (Version None)
Quarter: 2005Q4

REPORT INFORMATION
  Report Type: 
  Country: None (occurrence: None)
  Receive Date: 20051130
  Receipt Date: 20050727
  Transmission Date: 20060501
  Serious: Yes (Hospitalization)
  Sender: FDA-Public Use
  Company Number: US-BRISTOL-MYERS SQUIBB COMPANY-13052691

PATIENT
  Age: 37 Year
  Sex: Male

DRUGS (7)
  1. ABILIFY [Suspect]
     Indication: BIPOLAR DISORDER
     Route: 048
     Dates: start: 20050708, end: 20050721
  2. LITHOBID [Concomitant]
  3. KLONOPIN [Concomitant]
  4. LUNESTA [Concomitant]
  5. AMBIEN [Concomitant]
  6. SONATA [Concomitant]
  7. LITHIUM [Concomitant]

REACTIONS (2)
  - AKATHISIA [None]
  - PARKINSONISM [None]
